FAERS Safety Report 7250467-9 (Version None)
Quarter: 2011Q1

REPORT INFORMATION
  Report Type: 
  Country: None (occurrence: None)
  Receive Date: 20110128
  Receipt Date: 20100712
  Transmission Date: 20110831
  Serious: Yes (Other)
  Sender: FDA-Public Use
  Company Number: US-BAYER-201016048NA

PATIENT
  Sex: Female

DRUGS (2)
  1. YAZ [Suspect]
     Dosage: UNK
     Dates: start: 20080101, end: 20090101
  2. YASMIN [Suspect]

REACTIONS (4)
  - OESOPHAGITIS [None]
  - HIATUS HERNIA [None]
  - CHOLECYSTECTOMY [None]
  - OESOPHAGEAL INJURY [None]
